FAERS Safety Report 8134616-6 (Version None)
Quarter: 2012Q1

REPORT INFORMATION
  Report Type: 
  Country: None (occurrence: None)
  Receive Date: 20120214
  Receipt Date: 20120208
  Transmission Date: 20120608
  Serious: Yes (Other)
  Sender: FDA-Public Use
  Company Number: US-PFIZER INC-2012034632

PATIENT
  Sex: Male

DRUGS (1)
  1. RAPAMUNE [Suspect]
     Indication: LIVER DISORDER
     Dosage: 1 MG, 2X/DAY
     Dates: start: 20090309

REACTIONS (1)
  - LIVER TRANSPLANT REJECTION [None]
